FAERS Safety Report 8987496 (Version 1)
Quarter: 2012Q4

REPORT INFORMATION
  Report Type: Report from Study
  Country: NO (occurrence: NO)
  Receive Date: 20121227
  Receipt Date: 20121227
  Transmission Date: 20130627
  Serious: Yes (Hospitalization)
  Sender: FDA-Public Use
  Company Number: NO-BAXTER-2012BAX027765

PATIENT
  Age: 57 Year
  Sex: Female
  Weight: 71 kg

DRUGS (4)
  1. SENDOXAN 1000 MG PULVER TIL INJEKSJONSV?SKE, OPPL?SNING [Suspect]
     Indication: BREAST CANCER
     Dosage: 100
     Route: 042
     Dates: start: 20090508
  2. BEVACIZUMAB [Suspect]
     Indication: BREAST CANCER
     Route: 065
  3. FLUOROURACIL [Suspect]
     Indication: BREAST CANCER
     Dosage: 100
     Route: 042
     Dates: start: 20090508
  4. EPIRUBICIN [Suspect]
     Indication: BREAST CANCER
     Dosage: 100
     Route: 042
     Dates: start: 20090508

REACTIONS (2)
  - Febrile neutropenia [Recovered/Resolved]
  - Oropharyngeal pain [Unknown]
